FAERS Safety Report 5093238-4 (Version None)
Quarter: 2006Q3

REPORT INFORMATION
  Report Type: 
  Country: None (occurrence: None)
  Receive Date: 20060830
  Receipt Date: 20060817
  Transmission Date: 20061208
  Serious: Yes (Life-Threatening)
  Sender: FDA-Public Use
  Company Number: DE-BOEHRINGER INGELHEIM PHARMACEUTICALS, INC.-2006-DE-04335BY

PATIENT
  Sex: Male

DRUGS (8)
  1. KINZALMONO [Suspect]
     Dates: start: 20050609
  2. KINZALKOMB [Suspect]
     Dates: start: 20050101
  3. ALLOPURINOL [Concomitant]
     Dates: start: 20030201
  4. METOPROLOL TARTRATE [Concomitant]
     Dates: start: 20050101
  5. SIMVASTATIN [Concomitant]
     Dates: start: 20050101
  6. METFORMIN [Concomitant]
     Dates: start: 20030501
  7. SPIRIVA [Concomitant]
     Dates: start: 20050501
  8. SYMBICORT [Concomitant]
     Dates: start: 20050501

REACTIONS (2)
  - BRONCHIAL CARCINOMA [None]
  - NEOPLASM PROGRESSION [None]
